FAERS Safety Report 17673792 (Version 1)
Quarter: 2020Q2

REPORT INFORMATION
  Report Type: Spontaneous
  Country: BR (occurrence: BR)
  Receive Date: 20200415
  Receipt Date: 20200415
  Transmission Date: 20200714
  Serious: Yes (Other)
  Sender: FDA-Public Use
  Company Number: BR-GILEAD-2020-0459049

PATIENT
  Age: 35 Year
  Sex: Female

DRUGS (9)
  1. RALTEGRAVIR. [Concomitant]
     Active Substance: RALTEGRAVIR
  2. ETHAMBUTOL [Concomitant]
     Active Substance: ETHAMBUTOL HYDROCHLORIDE
  3. DARUNAVIR [Concomitant]
     Active Substance: DARUNAVIR
  4. LAMIVUDINE. [Concomitant]
     Active Substance: LAMIVUDINE
  5. CLARITHROMYCIN. [Concomitant]
     Active Substance: CLARITHROMYCIN
  6. VIREAD [Suspect]
     Active Substance: TENOFOVIR DISOPROXIL FUMARATE
     Indication: HIV INFECTION
  7. RIFAMPIN. [Concomitant]
     Active Substance: RIFAMPIN
  8. VIREAD [Suspect]
     Active Substance: TENOFOVIR DISOPROXIL FUMARATE
     Indication: ANTIRETROVIRAL THERAPY
     Route: 065
  9. ETRAVIRINE [Concomitant]
     Active Substance: ETRAVIRINE

REACTIONS (4)
  - Virologic failure [Unknown]
  - Immune reconstitution inflammatory syndrome [Unknown]
  - Mycobacterial infection [Unknown]
  - Herpes zoster [Not Recovered/Not Resolved]
